FAERS Safety Report 15656336 (Version 3)
Quarter: 2018Q4

REPORT INFORMATION
  Report Type: Spontaneous
  Country: IT (occurrence: IT)
  Receive Date: 20181126
  Receipt Date: 20181207
  Transmission Date: 20190205
  Serious: Yes (Other)
  Sender: FDA-Public Use
  Company Number: IT-JNJFOC-20181028048

PATIENT
  Age: 43 Year
  Sex: Female
  Weight: 90 kg

DRUGS (4)
  1. CIPRALEX [Concomitant]
     Active Substance: ESCITALOPRAM OXALATE
     Indication: DEPRESSION
     Route: 065
  2. STELARA [Suspect]
     Active Substance: USTEKINUMAB
     Indication: PSORIATIC ARTHROPATHY
     Route: 058
     Dates: start: 20180906, end: 20181015
  3. CALCIO + VITAMINA D [Concomitant]
     Indication: OSTEOPENIA
     Dosage: 1 SACHET /DAY
     Route: 065
     Dates: start: 2016
  4. SONIREM [Concomitant]
     Active Substance: ZOLPIDEM TARTRATE
     Indication: DEPRESSION
     Route: 065

REACTIONS (2)
  - Oedema [Recovered/Resolved]
  - Hypertension [Recovered/Resolved]

NARRATIVE: CASE EVENT DATE: 20181015
